FAERS Safety Report 9641927 (Version 1)
Quarter: 2013Q4

REPORT INFORMATION
  Report Type: Spontaneous
  Country: IT (occurrence: None)
  Receive Date: 20131022
  Receipt Date: 20131022
  Transmission Date: 20140711
  Serious: Yes (Other)
  Sender: FDA-Public Use
  Company Number: 2013P1020082

PATIENT
  Age: 66 Year
  Sex: Female

DRUGS (2)
  1. EPINEPHRINE [Suspect]
     Indication: LOCAL ANAESTHESIA
     Dosage: X1
  2. CARBOCAINE [Suspect]
     Indication: LOCAL ANAESTHESIA
     Dosage: X1

REACTIONS (1)
  - Stress cardiomyopathy [None]
